FAERS Safety Report 10674601 (Version 1)
Quarter: 2014Q4

REPORT INFORMATION
  Report Type: Spontaneous
  Country: US (occurrence: None)
  Receive Date: 20141223
  Receipt Date: 20141223
  Transmission Date: 20150529
  Serious: Yes (Hospitalization)
  Sender: FDA-Public Use
  Company Number: None

PATIENT
  Age: 69 Year
  Sex: Male
  Weight: 100.8 kg

DRUGS (3)
  1. CARBOPLATIN. [Suspect]
     Active Substance: CARBOPLATIN
     Dates: end: 20141121
  2. TAXOL [Suspect]
     Active Substance: PACLITAXEL
     Dates: end: 20141121
  3. BEVACIZUMAB (RHUMAB VEGF) [Suspect]
     Active Substance: BEVACIZUMAB
     Dates: end: 20141121

REACTIONS (3)
  - Febrile neutropenia [None]
  - Pneumonia [None]
  - Respiratory failure [None]

NARRATIVE: CASE EVENT DATE: 20141128
